FAERS Safety Report 9286448 (Version 1)
Quarter: 2013Q2

REPORT INFORMATION
  Report Type: Spontaneous
  Country: US (occurrence: None)
  Receive Date: 20130510
  Receipt Date: 20130510
  Transmission Date: 20140414
  Serious: Yes (Hospitalization)
  Sender: FDA-Public Use
  Company Number: None

PATIENT
  Age: 82 Year
  Sex: Female
  Weight: 75 kg

DRUGS (13)
  1. COUMADIN [Suspect]
     Indication: ATRIAL FIBRILLATION
     Dosage: CHRONIC
     Route: 048
  2. PLAVIX [Suspect]
     Indication: CORONARY ARTERY DISEASE
     Dosage: CHRONIC
     Route: 048
  3. ASPIRIN [Suspect]
     Indication: CORONARY ARTERY DISEASE
     Dosage: RECENT
  4. METOPROLOL [Concomitant]
  5. FENOFIBRATE [Concomitant]
  6. LEVOTHYROXINE [Concomitant]
  7. LISINOPRIL [Concomitant]
  8. BIOTIN [Concomitant]
  9. MVI [Concomitant]
  10. QMEGA 3 [Concomitant]
  11. CALCIUM CARBONATE [Concomitant]
  12. LIPTOR [Concomitant]
  13. CHOLECALCIFEROL [Concomitant]

REACTIONS (4)
  - Mental status changes [None]
  - Cerebral haemorrhage [None]
  - Hydrocephalus [None]
  - Hemiparesis [None]
